FAERS Safety Report 13496883 (Version 1)
Quarter: 2017Q2

REPORT INFORMATION
  Report Type: Report from Study
  Country: None (occurrence: GB)
  Receive Date: 20170428
  Receipt Date: 20170428
  Transmission Date: 20170830
  Serious: Yes (Hospitalization)
  Sender: FDA-Public Use
  Company Number: GB-ABBVIE-17P-167-1940431-00

PATIENT
  Sex: Male
  Weight: 95.1 kg

DRUGS (8)
  1. VENETOCLAX [Suspect]
     Active Substance: VENETOCLAX
     Indication: CHRONIC LYMPHOCYTIC LEUKAEMIA
     Route: 048
     Dates: start: 20161011, end: 20170409
  2. MORPHINE HYDROCHLORIDE WITH PEPPERMINT OIL [Concomitant]
     Indication: COUGH
     Dates: start: 20161101, end: 2017
  3. VENETOCLAX [Suspect]
     Active Substance: VENETOCLAX
     Route: 048
     Dates: end: 20170416
  4. IBRUTINIB [Suspect]
     Active Substance: IBRUTINIB
     Route: 048
     Dates: end: 20170416
  5. BISOPROLOL [Concomitant]
     Active Substance: BISOPROLOL
     Indication: ATRIAL FIBRILLATION
     Route: 048
     Dates: start: 20161101, end: 2017
  6. CLARITHROMYCIN. [Concomitant]
     Active Substance: CLARITHROMYCIN
     Indication: TONSILLITIS
     Dates: start: 20170409
  7. DIFFLAM MOUTHWASH [Concomitant]
     Indication: OROPHARYNGEAL PAIN
     Dates: start: 20170409
  8. IBRUTINIB [Suspect]
     Active Substance: IBRUTINIB
     Indication: CHRONIC LYMPHOCYTIC LEUKAEMIA
     Route: 048
     Dates: start: 20160808, end: 20170409

REACTIONS (2)
  - Laryngeal inflammation [Recovered/Resolved]
  - Laryngeal inflammation [Not Recovered/Not Resolved]

NARRATIVE: CASE EVENT DATE: 20170409
